FAERS Safety Report 9003750 (Version 1)
Quarter: 2013Q1

REPORT INFORMATION
  Report Type: Spontaneous
  Country: US (occurrence: US)
  Receive Date: 20130108
  Receipt Date: 20130108
  Transmission Date: 20140127
  Serious: No
  Sender: FDA-Public Use
  Company Number: US-GLAXOSMITHKLINE-A0971355A

PATIENT
  Age: 75 Year
  Sex: Female

DRUGS (13)
  1. LOVAZA [Suspect]
     Indication: BLOOD TRIGLYCERIDES INCREASED
     Dosage: 3CAP PER DAY
     Route: 048
  2. SUPER VITAMIN B COMPLEX [Concomitant]
  3. PROTONIX [Concomitant]
  4. B6 [Concomitant]
  5. ALTACE [Concomitant]
  6. UNKNOWN SUPPLEMENT [Concomitant]
  7. FOLIC ACID [Concomitant]
  8. CALMAG [Concomitant]
  9. VITAMIN D3 [Concomitant]
  10. UNKNOWN MEDICATION [Concomitant]
  11. ONE A DAY VITAMIN [Concomitant]
  12. VITAMIN D2 [Concomitant]
  13. CO Q10 [Concomitant]

REACTIONS (1)
  - Low density lipoprotein increased [Not Recovered/Not Resolved]
